FAERS Safety Report 4530585-6 (Version None)
Quarter: 2004Q4

REPORT INFORMATION
  Report Type: 
  Country: None (occurrence: None)
  Receive Date: 20041216
  Receipt Date: 20041203
  Transmission Date: 20050328
  Serious: Yes (Other)
  Sender: FDA-Public Use
  Company Number: 2004105719

PATIENT
  Sex: Female

DRUGS (1)
  1. LUSTRAL (SERTRALINE) [Suspect]
     Indication: DEPRESSION
     Dosage: ORAL
     Route: 048
     Dates: start: 20040801, end: 20041026

REACTIONS (3)
  - CONVULSION [None]
  - DRUG EXPOSURE VIA BREAST MILK [None]
  - EPILEPSY [None]
